FAERS Safety Report 19432434 (Version 1)
Quarter: 2021Q2

REPORT INFORMATION
  Report Type: Spontaneous
  Country: KR (occurrence: KR)
  Receive Date: 20210617
  Receipt Date: 20210617
  Transmission Date: 20210717
  Serious: Yes (Other)
  Sender: FDA-Public Use
  Company Number: KR-FRESENIUS KABI-FK202106100

PATIENT
  Age: 55 Year
  Sex: Male

DRUGS (17)
  1. IRINOTECAN (MANUFACTURER UNKNOWN) [Suspect]
     Active Substance: IRINOTECAN
     Indication: PANCREATIC CARCINOMA
     Dosage: NEO?ADJUVANT CHEMOTHERAPY WITH FOLFIRINOX
     Route: 065
     Dates: start: 201702
  2. FOLINIC ACID [Suspect]
     Active Substance: LEUCOVORIN
     Dosage: FROM 15TH FOLFIRINOX, 50 PERCENT DOSE USED; FINISHED ALL 32 FOLFIRINOX
     Route: 065
     Dates: end: 201903
  3. FLUOROURACIL. [Suspect]
     Active Substance: FLUOROURACIL
     Indication: PANCREATIC CARCINOMA
     Dosage: NEO?ADJUVANT CHEMOTHERAPY WITH FOLFIRINOX
     Route: 065
     Dates: start: 201702
  4. FLUOROURACIL. [Suspect]
     Active Substance: FLUOROURACIL
     Dosage: 12TH FOLFIRINOX DOSE REDUCTION TO 75 PERCENT
     Route: 065
  5. OXALIPLATIN. [Suspect]
     Active Substance: OXALIPLATIN
     Dosage: 13TH FOLFIRINOX ONLY 25 PERCENT DOSE USED
     Route: 065
     Dates: start: 201712
  6. CAPECITABINE. [Concomitant]
     Active Substance: CAPECITABINE
     Indication: PANCREATIC CARCINOMA
     Dosage: CHEMO?RADIATION THERAPY (CCRT) WITH XELODA IN SEPTEMBER 2017
     Route: 065
     Dates: start: 201709
  7. FLUOROURACIL. [Suspect]
     Active Substance: FLUOROURACIL
     Dosage: FROM 15TH FOLFIRINOX, 50 PERCENT DOSE USED; FINISHED ALL 32 FOLFIRINOX
     Route: 065
     Dates: end: 201903
  8. FOLINIC ACID [Suspect]
     Active Substance: LEUCOVORIN
     Dosage: 12TH FOLFIRINOX DOSE REDUCTION TO 75 PERCENT
     Route: 065
  9. IRINOTECAN (MANUFACTURER UNKNOWN) [Suspect]
     Active Substance: IRINOTECAN
     Dosage: 12TH FOLFIRINOX DOSE REDUCTION TO 75 PERCENT
     Route: 065
  10. IRINOTECAN (MANUFACTURER UNKNOWN) [Suspect]
     Active Substance: IRINOTECAN
     Dosage: 13TH FOLFIRINOX ONLY 25 PERCENT DOSE USED
     Route: 065
     Dates: start: 201712
  11. OXALIPLATIN. [Suspect]
     Active Substance: OXALIPLATIN
     Dosage: 12TH FOLFIRINOX DOSE REDUCTION TO 75 PERCENT
     Route: 065
  12. OXALIPLATIN. [Suspect]
     Active Substance: OXALIPLATIN
     Dosage: FROM 15TH FOLFIRINOX, 50 PERCENT DOSE USED; FINISHED ALL 32 FOLFIRINOX
     Route: 065
     Dates: end: 201903
  13. IRINOTECAN (MANUFACTURER UNKNOWN) [Suspect]
     Active Substance: IRINOTECAN
     Dosage: FROM 15TH FOLFIRINOX, 50 PERCENT DOSE USED; FINISHED ALL 32 FOLFIRINOX
     Route: 065
     Dates: end: 201903
  14. FOLINIC ACID [Suspect]
     Active Substance: LEUCOVORIN
     Indication: PANCREATIC CARCINOMA
     Dosage: NEO?ADJUVANT CHEMOTHERAPY WITH FOLFIRINOX
     Route: 065
     Dates: start: 201702
  15. OXALIPLATIN. [Suspect]
     Active Substance: OXALIPLATIN
     Indication: PANCREATIC CARCINOMA
     Dosage: NEO?ADJUVANT CHEMOTHERAPY WITH FOLFIRINOX
     Route: 065
     Dates: start: 201702
  16. FLUOROURACIL. [Suspect]
     Active Substance: FLUOROURACIL
     Dosage: 13TH FOLFIRINOX ONLY 25 PERCENT DOSE USED
     Route: 065
     Dates: start: 201712
  17. FOLINIC ACID [Suspect]
     Active Substance: LEUCOVORIN
     Dosage: 13TH FOLFIRINOX ONLY 25 PERCENT DOSE USED
     Route: 065
     Dates: start: 201712

REACTIONS (5)
  - Portal hypertension [Unknown]
  - Neutropenia [Unknown]
  - Hypersplenism [Unknown]
  - Thrombocytopenia [Recovering/Resolving]
  - Hepatotoxicity [Unknown]
